FAERS Safety Report 13667340 (Version 1)
Quarter: 2017Q2

REPORT INFORMATION
  Report Type: Spontaneous
  Country: FR (occurrence: FR)
  Receive Date: 20170620
  Receipt Date: 20170620
  Transmission Date: 20170830
  Serious: Yes (Hospitalization, Other)
  Sender: FDA-Public Use
  Company Number: FR-BAXTER-2017BAX023503

PATIENT
  Age: 51 Year
  Sex: Female

DRUGS (10)
  1. PREDNISONE. [Suspect]
     Active Substance: PREDNISONE
     Indication: B-CELL TYPE ACUTE LEUKAEMIA
     Dosage: PRE-PHASE TREATMENT
     Route: 065
     Dates: start: 20170411, end: 20170419
  2. CYTARABINE. [Concomitant]
     Active Substance: CYTARABINE
     Indication: PRODUCT USED FOR UNKNOWN INDICATION
     Dosage: TRIPLE ADMINISTRATION
     Route: 037
     Dates: start: 20170509
  3. HUMAN ANTITHROMBIN [Concomitant]
     Indication: ANTITHROMBIN III DECREASED
     Route: 065
     Dates: start: 20170501
  4. MESNA EG [Suspect]
     Active Substance: MESNA
     Indication: PROPHYLAXIS
     Route: 042
     Dates: start: 20170420, end: 20170504
  5. METHYLPREDNISOLONE. [Concomitant]
     Active Substance: METHYLPREDNISOLONE
     Indication: PRODUCT USED FOR UNKNOWN INDICATION
     Dosage: TRIPLE ADMINISTRATION
     Route: 037
     Dates: start: 20170509
  6. KIDROLASE [Suspect]
     Active Substance: ASPARAGINASE
     Indication: B-CELL TYPE ACUTE LEUKAEMIA
     Dosage: GRAALL PROTOCOL; 6000 IU/M2 ON DAY 8, DAY 10, DAY 12, DAY 20, DAY 22 AND DAY 24 OF INDUCTION CHEMOTH
     Route: 042
     Dates: start: 20170426, end: 20170513
  7. METHOTREXATE. [Concomitant]
     Active Substance: METHOTREXATE
     Indication: PRODUCT USED FOR UNKNOWN INDICATION
     Dosage: TRIPLE ADMINISTRATION
     Route: 037
     Dates: start: 20170509
  8. ENDOXAN 1000 MG, POUDRE POUR SOLUTION INJECTABLE [Suspect]
     Active Substance: CYCLOPHOSPHAMIDE
     Indication: B-CELL TYPE ACUTE LEUKAEMIA
     Dosage: GRAALL PROTOCOL; 750 MG/M2 ON DAY 1 AND DAY 15 OF INDUCTION CHEMOTHERAPY
     Route: 042
     Dates: start: 20170420, end: 20170504
  9. VINCRISTINE TEVA [Suspect]
     Active Substance: VINCRISTINE
     Indication: B-CELL TYPE ACUTE LEUKAEMIA
     Dosage: GRAALL PROTOCOL; ON DAY 1, DAY 8, DAY 15 AND DAY 22 OF INDUCTION CHEMOTHERAPY
     Route: 042
     Dates: start: 20170420, end: 20170511
  10. CERUBIDINE [Suspect]
     Active Substance: DAUNORUBICIN HYDROCHLORIDE
     Indication: B-CELL TYPE ACUTE LEUKAEMIA
     Dosage: GRAALL PROTOCOL; 30 MG/M2 ON DAY 1, DAY 2, DAY 3, DAY 15 AND DAY 16 OF INDUCTION CHEMOTHERAPY
     Route: 042
     Dates: start: 20170420, end: 20170504

REACTIONS (2)
  - Hepatic steatosis [Not Recovered/Not Resolved]
  - Cholestasis [Recovering/Resolving]

NARRATIVE: CASE EVENT DATE: 20170506
